FAERS Safety Report 9192429 (Version 2)
Quarter: 2013Q2

REPORT INFORMATION
  Report Type: Spontaneous
  Country: FR (occurrence: FR)
  Receive Date: 20130327
  Receipt Date: 20130417
  Transmission Date: 20140414
  Serious: Yes (Death, Hospitalization, Other)
  Sender: FDA-Public Use
  Company Number: FR-ELI_LILLY_AND_COMPANY-FR201303008777

PATIENT
  Age: 75 Year
  Sex: Female

DRUGS (5)
  1. CYMBALTA [Suspect]
     Indication: DEPRESSION
     Dosage: 60 MG, QD
     Route: 048
     Dates: start: 201107, end: 20130218
  2. CYMBALTA [Suspect]
     Dosage: 90 MG, UNK
     Route: 048
     Dates: start: 20130218
  3. SINEMET [Concomitant]
     Indication: PARKINSON^S DISEASE
     Dosage: 100 MG, QD
  4. EUPRESSYL [Concomitant]
     Indication: HYPERTENSION
  5. MYOLASTAN [Concomitant]
     Dosage: 25 MG, QD

REACTIONS (7)
  - Subarachnoid haemorrhage [Fatal]
  - Hypertension [Fatal]
  - Epilepsy [Fatal]
  - Hypothermia [Fatal]
  - Ruptured cerebral aneurysm [Fatal]
  - Coma [Fatal]
  - Mental disorder [Unknown]
